FAERS Safety Report 7160514-0 (Version None)
Quarter: 2010Q4

REPORT INFORMATION
  Report Type: 
  Country: None (occurrence: None)
  Receive Date: 20101214
  Receipt Date: 20101203
  Transmission Date: 20110411
  Serious: Yes (Other)
  Sender: FDA-Public Use
  Company Number: JP-PFIZER INC-2010170521

PATIENT
  Age: 65 Year
  Sex: Male

DRUGS (3)
  1. CELECOXIB [Suspect]
     Indication: RHEUMATOID ARTHRITIS
     Dosage: UNK
     Route: 048
  2. PIOGLITAZONE HYDROCHLORIDE [Interacting]
     Dosage: UNK
     Route: 048
  3. WARFARIN POTASSIUM [Interacting]
     Dosage: UNK
     Route: 048

REACTIONS (2)
  - DRUG INTERACTION [None]
  - POLLAKIURIA [None]
